FAERS Safety Report 13642061 (Version 4)
Quarter: 2017Q4

REPORT INFORMATION
  Report Type: Spontaneous
  Country: GR (occurrence: GR)
  Receive Date: 20170612
  Receipt Date: 20171002
  Transmission Date: 20180320
  Serious: Yes (Hospitalization, Other)
  Sender: FDA-Public Use
  Company Number: ALCN2017GR003822

PATIENT
  Age: 73 Year
  Sex: Female

DRUGS (2)
  1. CORTISONE [Concomitant]
     Active Substance: CORTISONE\HYDROCORTISONE
     Indication: POSTOPERATIVE CARE
     Route: 065
  2. BSS [Suspect]
     Active Substance: CALCIUM CHLORIDE\MAGNESIUM CHLORIDE\POTASSIUM CHLORIDE\SODIUM ACETATE\SODIUM CHLORIDE\SODIUM CITRATE
     Indication: EYE IRRIGATION
     Dosage: UNK
     Route: 031
     Dates: start: 20100623

REACTIONS (11)
  - Eye inflammation [Unknown]
  - Blindness unilateral [Unknown]
  - Endophthalmitis [Unknown]
  - Pupillary reflex impaired [Unknown]
  - Eye irritation [Unknown]
  - Eye oedema [Unknown]
  - Vision blurred [Unknown]
  - Eye pain [Unknown]
  - Hypopyon [Unknown]
  - Ocular hyperaemia [Unknown]
  - Ocular discomfort [Unknown]

NARRATIVE: CASE EVENT DATE: 20100624
